FAERS Safety Report 7523795-7 (Version None)
Quarter: 2011Q2

REPORT INFORMATION
  Report Type: 
  Country: None (occurrence: None)
  Receive Date: 20110603
  Receipt Date: 20110525
  Transmission Date: 20111010
  Serious: Yes (Hospitalization, Other)
  Sender: FDA-Public Use
  Company Number: US-ASTRAZENECA-2011SE32016

PATIENT
  Age: 53 Year
  Sex: Female
  Weight: 66.7 kg

DRUGS (6)
  1. LIPITOR [Concomitant]
  2. SEROQUEL [Suspect]
     Route: 048
  3. SEROQUEL [Suspect]
     Indication: BIPOLAR DISORDER
     Route: 048
  4. PLAVIX [Concomitant]
  5. TRAZODONE HCL [Concomitant]
  6. ASPIRIN [Concomitant]

REACTIONS (8)
  - INTENTIONAL SELF-INJURY [None]
  - ULCER [None]
  - DRUG DOSE OMISSION [None]
  - CORONARY ARTERIAL STENT INSERTION [None]
  - CRYING [None]
  - INSOMNIA [None]
  - CORONARY ARTERY BYPASS [None]
  - FATIGUE [None]
